FAERS Safety Report 11650753 (Version 2)
Quarter: 2015Q4

REPORT INFORMATION
  Report Type: Spontaneous
  Country: FR (occurrence: FR)
  Receive Date: 20151021
  Receipt Date: 20151117
  Transmission Date: 20160304
  Serious: Yes (Other)
  Sender: FDA-Public Use
  Company Number: ALCN2015FR006385

PATIENT
  Age: 26 Month
  Sex: Female

DRUGS (2)
  1. ISOPTO CARPINE [Suspect]
     Active Substance: PILOCARPINE HYDROCHLORIDE
     Indication: OPHTHALMOLOGICAL EXAMINATION
     Dosage: 1 GTT, ONCE3SDO
     Route: 047
     Dates: start: 20151002, end: 20151002
  2. ISOPTO HOMATROPINE [Suspect]
     Active Substance: HOMATROPINE HYDROBROMIDE
     Indication: OPHTHALMOLOGICAL EXAMINATION
     Dosage: UNK UNK, NO TREATMENT
     Route: 065

REACTIONS (10)
  - Miosis [Recovered/Resolved]
  - Vomiting [Recovered/Resolved]
  - Hypotonia [Recovered/Resolved]
  - Circumstance or information capable of leading to medication error [Unknown]
  - Visual impairment [Recovered/Resolved]
  - Pallor [Recovered/Resolved]
  - Drug administration error [Unknown]
  - Drug dispensing error [Unknown]
  - Pruritus [Recovered/Resolved]
  - Diarrhoea [Recovered/Resolved]

NARRATIVE: CASE EVENT DATE: 20151002
